FAERS Safety Report 17935919 (Version 1)
Quarter: 2020Q2

REPORT INFORMATION
  Report Type: Spontaneous
  Country: US (occurrence: US)
  Receive Date: 20200624
  Receipt Date: 20200624
  Transmission Date: 20200714
  Serious: Yes (Hospitalization)
  Sender: FDA-Public Use
  Company Number: None

PATIENT
  Age: 84 Year
  Sex: Male
  Weight: 60.4 kg

DRUGS (11)
  1. YESCARTA [Suspect]
     Active Substance: AXICABTAGENE CILOLEUCEL
     Indication: DIFFUSE LARGE B-CELL LYMPHOMA
     Dosage: ?          OTHER FREQUENCY:ONCE;?
     Route: 042
     Dates: start: 20200511, end: 20200511
  2. FLUDARABINE [Concomitant]
     Active Substance: FLUDARABINE PHOSPHATE
     Dates: start: 20200506, end: 20200508
  3. DEXAMETHASONE. [Concomitant]
     Active Substance: DEXAMETHASONE
     Dates: start: 20200522
  4. ELIQUIS [Concomitant]
     Active Substance: APIXABAN
     Dates: start: 20200511
  5. LACOSAMIDE (VIMPAT) [Concomitant]
     Dates: start: 20200528
  6. BRIVARACETAM (BRIVIACT) [Concomitant]
     Dates: start: 20200530
  7. VANCOMYCIN IV [Concomitant]
     Active Substance: VANCOMYCIN HYDROCHLORIDE
     Dates: start: 20200522
  8. LEVETIRACETAM (KEPPRA [Concomitant]
     Dates: start: 20200510
  9. ACTEMRA [Concomitant]
     Active Substance: TOCILIZUMAB
     Dates: start: 20200522
  10. OLANZAPINE. [Concomitant]
     Active Substance: OLANZAPINE
     Dates: start: 20200506, end: 20200508
  11. CYCLOPHOSPHAMIDE IV [Concomitant]
     Dates: start: 20200506, end: 20200508

REACTIONS (16)
  - Cerebrovascular accident [None]
  - Deep vein thrombosis [None]
  - Pyrexia [None]
  - Lethargy [None]
  - Confusional state [None]
  - Incontinence [None]
  - Brain midline shift [None]
  - Dyskinesia [None]
  - Seizure [None]
  - Tachycardia [None]
  - Aphasia [None]
  - Neurotoxicity [None]
  - Loss of consciousness [None]
  - Bradycardia [None]
  - Subdural haematoma [None]
  - Chills [None]

NARRATIVE: CASE EVENT DATE: 20200520
